FAERS Safety Report 8997667 (Version 3)
Quarter: 2013Q1

REPORT INFORMATION
  Report Type: Spontaneous
  Country: US (occurrence: US)
  Receive Date: 20130104
  Receipt Date: 20130219
  Transmission Date: 20140127
  Serious: No
  Sender: FDA-Public Use
  Company Number: US-PFIZER INC-2013002793

PATIENT
  Age: 72 Year
  Sex: Female
  Weight: 74.83 kg

DRUGS (4)
  1. CELEBREX [Suspect]
     Indication: MUSCULOSKELETAL PAIN
     Dosage: 200 MG, 1X/DAY
     Route: 048
     Dates: start: 20121202
  2. ADVAIR [Concomitant]
     Dosage: UNK
  3. NASONEX [Concomitant]
     Dosage: UNK
  4. SYNTHROID [Concomitant]
     Dosage: UNK

REACTIONS (2)
  - Lip swelling [Unknown]
  - Unevaluable event [Unknown]
